FAERS Safety Report 19353402 (Version 2)
Quarter: 2021Q3

REPORT INFORMATION
  Report Type: Spontaneous
  Country: DE (occurrence: DE)
  Receive Date: 20210531
  Receipt Date: 20210821
  Transmission Date: 20211014
  Serious: Yes (Hospitalization)
  Sender: FDA-Public Use
  Company Number: NVSC2021DE113986

PATIENT
  Age: 55 Year
  Sex: Male

DRUGS (6)
  1. RITUXIMAB. [Suspect]
     Active Substance: RITUXIMAB
     Indication: DIFFUSE LARGE B-CELL LYMPHOMA
     Dosage: 375 MG/M2, 21D (ON DAY 1 OF EACH 21?DAY CYCLE FOR UP TO 3 CYCLES)
     Route: 042
     Dates: start: 20210430, end: 20210430
  2. NOVAMINSULFON [Concomitant]
     Active Substance: METAMIZOLE
     Indication: HEADACHE
     Dosage: UNK
     Route: 065
     Dates: start: 2021
  3. IFOSFAMIDE. [Suspect]
     Active Substance: IFOSFAMIDE
     Indication: DIFFUSE LARGE B-CELL LYMPHOMA
     Dosage: 500 MG/M2
     Route: 042
     Dates: start: 20210501, end: 20210502
  4. POLATUZUMAB VEDOTIN. [Suspect]
     Active Substance: POLATUZUMAB VEDOTIN
     Indication: DIFFUSE LARGE B-CELL LYMPHOMA
     Dosage: 1.8 MG/KG, 21D (ON DAY 1 OF EACH 21?DAY CYCLE FOR UP TO 3 CYCLES)
     Route: 042
     Dates: start: 20210430, end: 20210430
  5. CARBOPLATIN. [Suspect]
     Active Substance: CARBOPLATIN
     Indication: DIFFUSE LARGE B-CELL LYMPHOMA
     Dosage: UNK (AUC 5 MAX 800 MG ON CYCLE DAY 2)
     Route: 042
     Dates: start: 20210501, end: 20210501
  6. ETOPOSIDE. [Suspect]
     Active Substance: ETOPOSIDE
     Indication: DIFFUSE LARGE B-CELL LYMPHOMA
     Dosage: 100 MG/M2
     Route: 042
     Dates: start: 20210430, end: 20210502

REACTIONS (1)
  - Pyrexia [Recovered/Resolved]

NARRATIVE: CASE EVENT DATE: 20210503
